FAERS Safety Report 9244529 (Version 2)
Quarter: 2013Q2

REPORT INFORMATION
  Report Type: Report from Study
  Country: BR (occurrence: BR)
  Receive Date: 20130422
  Receipt Date: 20130516
  Transmission Date: 20140414
  Serious: Yes (Death, Other)
  Sender: FDA-Public Use
  Company Number: PHHY2013BR038021

PATIENT
  Age: 83 Year
  Sex: Female

DRUGS (1)
  1. DIOVAN [Suspect]
     Indication: HYPERTENSION
     Dosage: 2 DF (320MG), DAILY
     Route: 048

REACTIONS (8)
  - Ischaemic stroke [Fatal]
  - Effusion [Fatal]
  - Hypertension [Fatal]
  - Arrhythmia [Fatal]
  - Cardiac murmur [Unknown]
  - Cardiac disorder [Not Recovered/Not Resolved]
  - Heart rate decreased [Unknown]
  - General physical health deterioration [Unknown]
